FAERS Safety Report 24771227 (Version 1)
Quarter: 2024Q4

REPORT INFORMATION
  Report Type: Spontaneous
  Country: US (occurrence: US)
  Receive Date: 20241224
  Receipt Date: 20241224
  Transmission Date: 20250114
  Serious: No
  Sender: AZURITY PHARMACEUTICALS
  Company Number: US-APCER-AZR202407-000017

PATIENT
  Sex: Female

DRUGS (1)
  1. THYQUIDITY [Suspect]
     Active Substance: LEVOTHYROXINE SODIUM
     Indication: Thyroid disorder
     Dosage: UNK
     Route: 048

REACTIONS (10)
  - Tremor [Unknown]
  - Malaise [Unknown]
  - Ear pain [Unknown]
  - Mental disorder [Unknown]
  - Dizziness [Unknown]
  - Product container seal issue [Unknown]
  - Product taste abnormal [Unknown]
  - Therapeutic product effect variable [Unknown]
  - Drug ineffective [Unknown]
  - Wrong technique in product usage process [Unknown]
